FAERS Safety Report 8836291 (Version 1)
Quarter: 2012Q4

REPORT INFORMATION
  Report Type: 
  Country: IS (occurrence: IS)
  Receive Date: 20121011
  Receipt Date: 20121011
  Transmission Date: 20130627
  Serious: Yes (Other)
  Sender: FDA-Public Use
  Company Number: PHHY2012IS089598

PATIENT

DRUGS (2)
  1. CLOZAPINE [Suspect]
     Dosage: 175 mg, UNK
     Route: 048
  2. SERTRALINE [Suspect]

REACTIONS (2)
  - Drug interaction [Unknown]
  - Antipsychotic drug level increased [Unknown]
